FAERS Safety Report 20120526 (Version 1)
Quarter: 2021Q4

REPORT INFORMATION
  Report Type: Spontaneous
  Country: IT (occurrence: IT)
  Receive Date: 20211126
  Receipt Date: 20211126
  Transmission Date: 20220303
  Serious: Yes (Hospitalization)
  Sender: FDA-Public Use
  Company Number: None

PATIENT
  Age: 80 Year
  Sex: Female

DRUGS (7)
  1. LEVOFLOXACIN [Suspect]
     Active Substance: LEVOFLOXACIN
     Indication: Pneumonitis aspiration
     Dosage: 500 MILLIGRAM, ONCE
     Route: 042
     Dates: start: 20210911, end: 20210911
  2. FUROSEMIDE [Concomitant]
     Active Substance: FUROSEMIDE
     Indication: Hypertension
     Dosage: 20 MILLIGRAM
     Route: 042
  3. MEROPENEM [Concomitant]
     Active Substance: MEROPENEM
     Indication: Pneumonia aspiration
     Dosage: 2 GRAM
     Route: 042
  4. CANRENOATE POTASSIUM [Concomitant]
     Active Substance: CANRENOATE POTASSIUM
     Indication: Hypertension
     Dosage: 100 MILLIGRAM
     Route: 042
  5. OLIMEL [Concomitant]
     Active Substance: AMINO ACIDS\DEXTROSE\SOYBEAN OIL
     Indication: Parenteral nutrition
     Dosage: 1000 MILLILITER
     Route: 042
  6. PANTOPRAZOLE [Concomitant]
     Active Substance: PANTOPRAZOLE
     Indication: Gastritis prophylaxis
     Dosage: 40 MILLIGRAM
     Route: 042
  7. CERNEVIT                           /06027301/ [Concomitant]
     Indication: Vitamin supplementation
     Dosage: 1 DOSAGE FORM
     Route: 042

REACTIONS (1)
  - Exfoliative rash [Recovering/Resolving]

NARRATIVE: CASE EVENT DATE: 20210912
